FAERS Safety Report 7403477-2 (Version None)
Quarter: 2011Q2

REPORT INFORMATION
  Report Type: 
  Country: None (occurrence: None)
  Receive Date: 20110408
  Receipt Date: 20110331
  Transmission Date: 20111010
  Serious: Yes (Death)
  Sender: FDA-Public Use
  Company Number: B0711515A

PATIENT
  Age: 70 Year
  Sex: Male

DRUGS (1)
  1. ARIXTRA [Suspect]
     Indication: ACUTE CORONARY SYNDROME
     Dosage: 2.5MG PER DAY
     Route: 030
     Dates: start: 20110328, end: 20110331

REACTIONS (3)
  - RETROPERITONEAL HAEMATOMA [None]
  - HAEMORRHAGE [None]
  - RENAL FAILURE ACUTE [None]
